FAERS Safety Report 9335802 (Version 1)
Quarter: 2013Q2

REPORT INFORMATION
  Report Type: Spontaneous
  Country: US (occurrence: US)
  Receive Date: 20130606
  Receipt Date: 20130606
  Transmission Date: 20140414
  Serious: No
  Sender: FDA-Public Use
  Company Number: US-AMGEN-USASP2013025599

PATIENT
  Age: 43 Year
  Sex: Female
  Weight: 65.76 kg

DRUGS (5)
  1. PROLIA [Suspect]
     Indication: PRODUCT USED FOR UNKNOWN INDICATION
  2. TOPROL [Concomitant]
     Indication: MITRAL VALVE PROLAPSE
     Dosage: 50 UNK, QD
     Route: 048
  3. LORAZEPAM [Concomitant]
     Indication: ANXIETY
     Dosage: 1 MG, UNK
  4. NEXIUM                             /01479302/ [Concomitant]
     Indication: HIATUS HERNIA
     Route: 048
  5. MOBIC [Concomitant]
     Indication: OSTEOARTHRITIS
     Dosage: 7.5 MG, QD
     Dates: start: 20130221

REACTIONS (8)
  - Pain in jaw [Recovering/Resolving]
  - Rash pruritic [Recovering/Resolving]
  - Arthralgia [Recovering/Resolving]
  - Fear [Recovering/Resolving]
  - Eating disorder [Recovering/Resolving]
  - Bone pain [Recovering/Resolving]
  - Pain in extremity [Recovering/Resolving]
  - Muscle spasms [Recovering/Resolving]
